FAERS Safety Report 7335785-8 (Version None)
Quarter: 2011Q1

REPORT INFORMATION
  Report Type: 
  Country: None (occurrence: None)
  Receive Date: 20110302
  Receipt Date: 20110302
  Transmission Date: 20110831
  Serious: Yes (Other)
  Sender: FDA-Public Use
  Company Number: None

PATIENT
  Age: 48 Year
  Sex: Female
  Weight: 61.4 kg

DRUGS (2)
  1. LOESTRIN 1.5/30 [Suspect]
     Indication: MENORRHAGIA
     Dosage: MOUTH
     Dates: start: 19960801, end: 19970501
  2. TRI-LEVLEN 28 [Suspect]
     Indication: MENOPAUSE
     Dosage: MOUTH
     Dates: start: 19970501, end: 19970801

REACTIONS (3)
  - GRAND MAL CONVULSION [None]
  - AURA [None]
  - HALLUCINATION, AUDITORY [None]
